FAERS Safety Report 20551351 (Version 1)
Quarter: 2022Q1

REPORT INFORMATION
  Report Type: Spontaneous
  Country: US (occurrence: US)
  Receive Date: 20220304
  Receipt Date: 20220304
  Transmission Date: 20220423
  Serious: Yes (Other)
  Sender: FDA-Public Use
  Company Number: US-NOVOPROD-895509

PATIENT
  Sex: Female

DRUGS (1)
  1. NOVOLOG [Suspect]
     Active Substance: INSULIN ASPART
     Indication: Diabetes mellitus
     Dosage: 5 UNITS IN THE MORNING, 6 UNITS AT LUNCH, 7 UNITS IN THE EVENING
     Route: 058
     Dates: start: 2019

REACTIONS (1)
  - Cataract [Not Recovered/Not Resolved]
